FAERS Safety Report 23137895 (Version 1)
Quarter: 2023Q4

REPORT INFORMATION
  Report Type: Spontaneous
  Country: AU (occurrence: AU)
  Receive Date: 20231102
  Receipt Date: 20231102
  Transmission Date: 20240109
  Serious: Yes (Other)
  Sender: FDA-Public Use
  Company Number: AU-TEVA-2023-AU-2941540

PATIENT
  Sex: Female

DRUGS (1)
  1. AJOVY [Suspect]
     Active Substance: FREMANEZUMAB-VFRM
     Indication: Product used for unknown indication
     Dosage: FORM STRENGTH AND UNIT DOSE: 225MILLIGRAM
     Route: 065

REACTIONS (4)
  - Wound [Recovered/Resolved]
  - Injection site bruising [Recovered/Resolved]
  - Accidental exposure to product [Unknown]
  - Device issue [Unknown]
